FAERS Safety Report 4976771-2 (Version None)
Quarter: 2006Q2

REPORT INFORMATION
  Report Type: 
  Country: None (occurrence: None)
  Receive Date: 20060419
  Receipt Date: 20060323
  Transmission Date: 20061013
  Serious: Yes (Other)
  Sender: FDA-Public Use
  Company Number: FR-GLAXOSMITHKLINE-B0418695A

PATIENT
  Age: 57 Year
  Sex: Male

DRUGS (3)
  1. ZEFFIX [Suspect]
     Indication: HEPATITIS B
     Dosage: 100MG PER DAY
     Route: 048
     Dates: start: 20000101
  2. MOPRAL [Concomitant]
     Route: 065
  3. AVLOCARDYL [Concomitant]
     Route: 065

REACTIONS (5)
  - ALPHA 1 FOETOPROTEIN INCREASED [None]
  - BLOOD GLUCOSE INCREASED [None]
  - GAMMA-GLUTAMYLTRANSFERASE INCREASED [None]
  - HEPATIC NEOPLASM [None]
  - PROTHROMBIN LEVEL DECREASED [None]
